FAERS Safety Report 7959099-8 (Version None)
Quarter: 2011Q4

REPORT INFORMATION
  Report Type: 
  Country: None (occurrence: None)
  Receive Date: 20111206
  Receipt Date: 20111206
  Transmission Date: 20120403
  Serious: Yes (Hospitalization)
  Sender: FDA-Public Use
  Company Number: None

PATIENT
  Age: 66 Year
  Sex: Male

DRUGS (9)
  1. COREG [Concomitant]
  2. SODIUM BICARBONATE [Concomitant]
  3. PERCOCET [Concomitant]
  4. PLETAL [Concomitant]
  5. ZOCOR [Concomitant]
  6. LASIX [Concomitant]
  7. BACTRIM DS [Suspect]
     Indication: ULCER
     Dosage: 1 TAB
     Route: 048
  8. HYDRALAZINE HCL [Concomitant]
  9. PHENERGAN [Concomitant]

REACTIONS (4)
  - NAUSEA [None]
  - DIZZINESS [None]
  - HYPOPHAGIA [None]
  - DECREASED APPETITE [None]
